FAERS Safety Report 8432650-X (Version None)
Quarter: 2012Q2

REPORT INFORMATION
  Report Type: 
  Country: None (occurrence: None)
  Receive Date: 20120613
  Receipt Date: 20120604
  Transmission Date: 20120825
  Serious: Yes (Hospitalization, Other)
  Sender: FDA-Public Use
  Company Number: US-BAYER-2012-007448

PATIENT
  Age: 37 Year
  Sex: Female
  Weight: 83.9 kg

DRUGS (17)
  1. ZOVIRAX [Concomitant]
     Indication: ORAL HERPES
     Dosage: 5 %, UNK
     Route: 061
     Dates: start: 20070713
  2. BUSPAR [Concomitant]
     Indication: ANXIETY
     Dosage: ? TABLET EVERY 12 HOURS, ON DAYS WHEN NOT TAKING EFFEXOR
     Route: 048
     Dates: start: 20070926
  3. NASACORT [Concomitant]
     Indication: MULTIPLE ALLERGIES
     Dosage: 55 MCG SPRAY,2 SPRAYS EACH NOSTRIL EVERY DAY
  4. ADVAIR DISKUS 100/50 [Concomitant]
     Indication: MULTIPLE ALLERGIES
     Dosage: 230-21 MCG/ACTUATION; 1 PUFF AS DIRECTED
  5. ANTIBIOTICS [Concomitant]
     Indication: BRONCHITIS
  6. ZYRTEC [Concomitant]
     Indication: MULTIPLE ALLERGIES
     Dosage: 10 MG, EVERY DAY
  7. PHENAZOPYRIDINE HCL TAB [Concomitant]
     Indication: URINARY TRACT INFECTION
     Dosage: 200 MG, VERY 8 HOURS; QUANTITY: 9
     Route: 048
     Dates: start: 20070713
  8. HUMIBID [Concomitant]
     Indication: MULTIPLE ALLERGIES
     Dosage: 40-600 MG TABLET EVERY 12 HOURS
  9. MOBIC [Concomitant]
     Indication: MUSCULOSKELETAL PAIN
     Dosage: 7.5 MG, EVERY DAY
  10. FLEXERIL [Concomitant]
     Indication: MUSCULOSKELETAL PAIN
     Dosage: 5 MG, TID
  11. YASMIN [Suspect]
     Indication: CONTRACEPTION
     Dosage: UNK
     Dates: start: 20060706, end: 20071015
  12. LOPROX [Concomitant]
     Indication: RASH
     Dosage: 0.77 UNK, USE AS DIRECTED
     Route: 061
  13. MEDROL [Concomitant]
     Indication: MUSCULOSKELETAL PAIN
     Dosage: UNK
     Dates: start: 20070926
  14. ROZEREM [Concomitant]
     Indication: INSOMNIA
     Dosage: 8 MG, AT NIGHT
  15. CIPROFLOXACIN HCL [Concomitant]
     Indication: URINARY TRACT INFECTION
     Dosage: 500 MG, BID, QUANTITY: 14
     Route: 048
     Dates: start: 20070713
  16. EFFEXOR [Concomitant]
     Indication: DEPRESSION
     Dosage: 37.5 MG, WEAN DOWN
  17. METOPROLOL TARTRATE [Concomitant]
     Indication: HYPERTENSION

REACTIONS (8)
  - DEEP VEIN THROMBOSIS [None]
  - INJURY [None]
  - THROMBOPHLEBITIS SUPERFICIAL [None]
  - GENERAL PHYSICAL HEALTH DETERIORATION [None]
  - PULMONARY EMBOLISM [None]
  - PAIN [None]
  - ANXIETY [None]
  - EMOTIONAL DISTRESS [None]
